FAERS Safety Report 9183451 (Version 2)
Quarter: 2013Q1

REPORT INFORMATION
  Report Type: Spontaneous
  Country: US (occurrence: US)
  Receive Date: 20130322
  Receipt Date: 20130322
  Transmission Date: 20140127
  Serious: No
  Sender: FDA-Public Use
  Company Number: US-TEVA-392124USA

PATIENT
  Sex: Female
  Weight: 68.1 kg

DRUGS (5)
  1. PROAIR HFA [Suspect]
     Indication: ASTHMA
     Dosage: 1 PUFF PRN
     Route: 055
     Dates: start: 201303
  2. ATENOLOL [Concomitant]
     Indication: HYPERTENSION
     Dosage: DAILY
     Route: 048
     Dates: start: 1993
  3. ATENOLOL [Concomitant]
     Indication: SUPRAVENTRICULAR TACHYCARDIA
  4. MULTIVITAMIN [Concomitant]
     Route: 048
  5. ASPIRIN [Concomitant]
     Dosage: PRN
     Route: 048

REACTIONS (8)
  - Chest discomfort [Recovered/Resolved]
  - Abdominal distension [Recovered/Resolved]
  - Abdominal discomfort [Recovered/Resolved]
  - Nervousness [Recovered/Resolved]
  - Tremor [Recovered/Resolved]
  - Dizziness [Recovered/Resolved]
  - Heart rate increased [Recovered/Resolved]
  - Drug effect decreased [Unknown]
